FAERS Safety Report 9246147 (Version 1)
Quarter: 2013Q2

REPORT INFORMATION
  Report Type: Spontaneous
  Country: IT (occurrence: IT)
  Receive Date: 20130422
  Receipt Date: 20130422
  Transmission Date: 20140414
  Serious: Yes (Hospitalization)
  Sender: FDA-Public Use
  Company Number: IT-009507513-2012SP034754

PATIENT
  Age: 54 Year
  Sex: Male

DRUGS (5)
  1. VICTRELIS [Suspect]
     Indication: CHRONIC HEPATITIS
     Dosage: 800 MG, TID
     Route: 048
     Dates: start: 20120530
  2. PEG-INTRON [Suspect]
     Indication: CHRONIC HEPATITIS
     Dosage: 120 MCG, QW
     Route: 058
     Dates: start: 20120502
  3. REBETOL [Suspect]
     Indication: CHRONIC HEPATITIS
     Dosage: 1000 MG, QD
     Route: 048
     Dates: start: 20120502
  4. ESKIM [Concomitant]
     Indication: DYSLIPIDAEMIA
     Dosage: UNK UNK, UNKNOWN
     Route: 048
     Dates: start: 201106
  5. CANDESARTAN [Concomitant]
     Indication: PRODUCT USED FOR UNKNOWN INDICATION
     Dosage: 8 MG, QD
     Route: 048

REACTIONS (1)
  - Hypertriglyceridaemia [Recovering/Resolving]
